FAERS Safety Report 8446157-7 (Version None)
Quarter: 2012Q2

REPORT INFORMATION
  Report Type: 
  Country: None (occurrence: None)
  Receive Date: 20120323
  Receipt Date: 20110831
  Transmission Date: 20120825
  Serious: Yes (Other)
  Sender: FDA-Public Use
  Company Number: 163-21880-11090262

PATIENT
  Age: 63 Year
  Sex: Female
  Weight: 101.6057 kg

DRUGS (5)
  1. REVLIMID [Suspect]
     Indication: MULTIPLE MYELOMA
     Dosage: 25; 10; 5 MG; 1 IN 1 D, PO
     Route: 048
     Dates: start: 20110801
  2. REVLIMID [Suspect]
     Indication: MULTIPLE MYELOMA
     Dosage: 25; 10; 5 MG; 1 IN 1 D, PO
     Route: 048
     Dates: start: 20100601
  3. REVLIMID [Suspect]
     Indication: MULTIPLE MYELOMA
     Dosage: 25; 10; 5 MG; 1 IN 1 D, PO
     Route: 048
     Dates: start: 20110401
  4. REVLIMID [Suspect]
     Indication: MULTIPLE MYELOMA
     Dosage: 25; 10; 5 MG; 1 IN 1 D, PO
     Route: 048
     Dates: start: 20100201
  5. REVLIMID [Suspect]
     Indication: MULTIPLE MYELOMA
     Dosage: 25; 10; 5 MG; 1 IN 1 D, PO
     Route: 048
     Dates: start: 20101001

REACTIONS (1)
  - PANCYTOPENIA [None]
